FAERS Safety Report 5737488-X (Version None)
Quarter: 2008Q2

REPORT INFORMATION
  Report Type: 
  Country: None (occurrence: None)
  Receive Date: 20080514
  Receipt Date: 20080507
  Transmission Date: 20081010
  Serious: Yes (Other)
  Sender: FDA-Public Use
  Company Number: GB-TEVA-171384ISR

PATIENT
  Age: 40 Year
  Sex: Male

DRUGS (2)
  1. PREDNISOLONE [Suspect]
  2. CYCLOSPORINE [Suspect]

REACTIONS (1)
  - HODGKIN'S DISEASE MIXED CELLULARITY STAGE UNSPECIFIED [None]
